FAERS Safety Report 6689403-2 (Version None)
Quarter: 2010Q2

REPORT INFORMATION
  Report Type: 
  Country: None (occurrence: None)
  Receive Date: 20100419
  Receipt Date: 20100419
  Transmission Date: 20101027
  Serious: No
  Sender: FDA-Public Use
  Company Number: None

PATIENT

DRUGS (1)
  1. DEPO-PROVERA [Suspect]
     Dates: start: 20100122, end: 20100122

REACTIONS (7)
  - IMMEDIATE POST-INJECTION REACTION [None]
  - INJECTION SITE DISCOLOURATION [None]
  - INJECTION SITE REACTION [None]
  - MOVEMENT DISORDER [None]
  - PAIN [None]
  - SWELLING [None]
  - VOMITING [None]
